FAERS Safety Report 20160469 (Version 1)
Quarter: 2021Q4

REPORT INFORMATION
  Report Type: Spontaneous
  Country: US (occurrence: US)
  Receive Date: 20211208
  Receipt Date: 20211208
  Transmission Date: 20220304
  Serious: No
  Sender: FDA-Public Use
  Company Number: US-PFIZER INC-202101542477

PATIENT
  Age: 49 Year
  Sex: Female

DRUGS (10)
  1. ENBREL [Suspect]
     Active Substance: ETANERCEPT
     Dosage: UNK
  2. METHOTREXATE SODIUM [Suspect]
     Active Substance: METHOTREXATE SODIUM
     Dosage: UNK
  3. SULFASALAZINE [Suspect]
     Active Substance: SULFASALAZINE
     Dosage: UNK
  4. ACTEMRA [Suspect]
     Active Substance: TOCILIZUMAB
     Dosage: UNK
  5. ORENCIA [Suspect]
     Active Substance: ABATACEPT
     Dosage: UNK
  6. FOLIC ACID [Suspect]
     Active Substance: FOLIC ACID
     Dosage: UNK
  7. LEFLUNOMIDE [Suspect]
     Active Substance: LEFLUNOMIDE
     Dosage: UNK
  8. PLAQUENIL [Suspect]
     Active Substance: HYDROXYCHLOROQUINE SULFATE
     Dosage: UNK
  9. PREDNISONE [Suspect]
     Active Substance: PREDNISONE
     Dosage: UNK
  10. HUMIRA [Suspect]
     Active Substance: ADALIMUMAB
     Dosage: UNK

REACTIONS (1)
  - Treatment failure [Unknown]
